FAERS Safety Report 13530393 (Version 1)
Quarter: 2017Q2

REPORT INFORMATION
  Report Type: Spontaneous
  Country: US (occurrence: US)
  Receive Date: 20170509
  Receipt Date: 20170509
  Transmission Date: 20170830
  Serious: No
  Sender: FDA-Public Use
  Company Number: None

PATIENT
  Age: 68 Year
  Sex: Male
  Weight: 141.4 kg

DRUGS (2)
  1. AMIODARONE [Suspect]
     Active Substance: AMIODARONE
     Indication: MITRAL VALVE INCOMPETENCE
     Route: 048
     Dates: start: 20131106, end: 20150829
  2. AMIODARONE [Suspect]
     Active Substance: AMIODARONE
     Indication: ATRIAL FIBRILLATION
     Route: 048
     Dates: start: 20131106, end: 20150829

REACTIONS (8)
  - Drug ineffective [None]
  - Hyperhidrosis [None]
  - Thyroid mass [None]
  - Temperature intolerance [None]
  - Weight decreased [None]
  - Adrenal insufficiency [None]
  - Hyperthyroidism [None]
  - Tremor [None]

NARRATIVE: CASE EVENT DATE: 20160912
